FAERS Safety Report 6213140-1 (Version None)
Quarter: 2009Q2

REPORT INFORMATION
  Report Type: 
  Country: None (occurrence: None)
  Receive Date: 20090601
  Receipt Date: 20090601
  Transmission Date: 20091009
  Serious: Yes (Hospitalization)
  Sender: FDA-Public Use
  Company Number: None

PATIENT
  Sex: Male
  Weight: 79 kg

DRUGS (8)
  1. FLUOROURACIL [Suspect]
     Dosage: 5404 MG
  2. ERBITUX [Suspect]
     Dosage: 772 MG
  3. LEUCOVORIN CALCIUM [Suspect]
     Dosage: 772 MG
  4. ELOXATIN [Suspect]
     Dosage: 164 MG
  5. FERRACON [Concomitant]
  6. LISINOPRIL [Concomitant]
  7. LOVASTATIN [Concomitant]
  8. PROTONIX [Concomitant]

REACTIONS (1)
  - GASTROINTESTINAL HAEMORRHAGE [None]
